FAERS Safety Report 13271955 (Version 1)
Quarter: 2017Q1

REPORT INFORMATION
  Report Type: Spontaneous
  Country: US (occurrence: US)
  Receive Date: 20170224
  Receipt Date: 20170224
  Transmission Date: 20170428
  Serious: Yes (Disabling)
  Sender: FDA-Public Use
  Company Number: None

PATIENT
  Age: 48 Year
  Sex: Female
  Weight: 67.5 kg

DRUGS (2)
  1. HEPARIN [Suspect]
     Active Substance: HEPARIN SODIUM
     Indication: CEREBROVASCULAR ACCIDENT
     Route: 030
     Dates: start: 20140401, end: 20141001
  2. ATORVASTATIN [Suspect]
     Active Substance: ATORVASTATIN
     Indication: ARTERIAL DISORDER
     Route: 048
     Dates: start: 20140701, end: 20160820

REACTIONS (2)
  - Muscle injury [None]
  - Impaired healing [None]

NARRATIVE: CASE EVENT DATE: 20151001
